FAERS Safety Report 22654013 (Version 1)
Quarter: 2023Q2

REPORT INFORMATION
  Report Type: Spontaneous
  Country: US (occurrence: None)
  Receive Date: 20230628
  Receipt Date: 20230628
  Transmission Date: 20230722
  Serious: No
  Sender: FDA-Public Use
  Company Number: None

PATIENT

DRUGS (2)
  1. INVEGA [Suspect]
     Active Substance: PALIPERIDONE
  2. OLANZAPINE [Suspect]
     Active Substance: OLANZAPINE

REACTIONS (2)
  - Drug monitoring procedure not performed [None]
  - Tardive dyskinesia [None]
